FAERS Safety Report 17709542 (Version 1)
Quarter: 2020Q2

REPORT INFORMATION
  Report Type: Spontaneous
  Country: DE (occurrence: DE)
  Receive Date: 20200427
  Receipt Date: 20200427
  Transmission Date: 20200714
  Serious: Yes (Hospitalization)
  Sender: FDA-Public Use
  Company Number: DE-TEVA-2020-DE-1226950

PATIENT
  Age: 17 Year
  Sex: Female

DRUGS (2)
  1. ALKOHOL [Interacting]
     Active Substance: ALCOHOL
     Route: 065
  2. RISPERIDON [Suspect]
     Active Substance: RISPERIDONE
     Indication: POISONING
     Dosage: 7 MG
     Route: 048

REACTIONS (5)
  - Oromandibular dystonia [Recovered/Resolved]
  - Hypoaesthesia oral [Recovered/Resolved]
  - Alcohol interaction [Recovered/Resolved]
  - Overdose [Recovered/Resolved]
  - Dysphagia [Recovered/Resolved]

NARRATIVE: CASE EVENT DATE: 20200125
